FAERS Safety Report 6564427-4 (Version None)
Quarter: 2010Q1

REPORT INFORMATION
  Report Type: 
  Country: None (occurrence: None)
  Receive Date: 20100201
  Receipt Date: 20100125
  Transmission Date: 20100710
  Serious: Yes (Other)
  Sender: FDA-Public Use
  Company Number: CH-BRISTOL-MYERS SQUIBB COMPANY-14948509

PATIENT
  Age: 70 Year
  Sex: Female

DRUGS (1)
  1. TAXOL [Suspect]
     Indication: BREAST CANCER
     Dosage: INITIALLY DOSE REDUCED AND THEN INTERRUPTED
     Route: 042

REACTIONS (2)
  - FEBRILE NEUTROPENIA [None]
  - LEUKOCYTOCLASTIC VASCULITIS [None]
